FAERS Safety Report 6812765-X (Version None)
Quarter: 2010Q3

REPORT INFORMATION
  Report Type: 
  Country: None (occurrence: None)
  Receive Date: 20100701
  Receipt Date: 20100628
  Transmission Date: 20110219
  Serious: Yes (Death)
  Sender: FDA-Public Use
  Company Number: A0867971A

PATIENT
  Age: 75 Year
  Sex: Female

DRUGS (3)
  1. TYKERB [Suspect]
     Indication: PRODUCT USED FOR UNKNOWN INDICATION
     Dosage: 250MG UNKNOWN
     Route: 048
     Dates: start: 20070613, end: 20100628
  2. UNKNOWN [Concomitant]
  3. UNKNOWN [Concomitant]

REACTIONS (1)
  - DEATH [None]
